FAERS Safety Report 11007444 (Version 2)
Quarter: 2015Q2

REPORT INFORMATION
  Report Type: Spontaneous
  Country: US (occurrence: US)
  Receive Date: 20150409
  Receipt Date: 20150525
  Transmission Date: 20150821
  Serious: No
  Sender: FDA-Public Use
  Company Number: US-JNJFOC-20130611961

PATIENT
  Age: 59 Year
  Sex: Male

DRUGS (2)
  1. APRISO [Concomitant]
     Active Substance: MESALAMINE
     Route: 065
  2. REMICADE [Suspect]
     Active Substance: INFLIXIMAB
     Indication: CROHN^S DISEASE
     Route: 042
     Dates: end: 20130618

REACTIONS (3)
  - Infusion site extravasation [Not Recovered/Not Resolved]
  - Infusion related reaction [Not Recovered/Not Resolved]
  - Injection site oedema [Not Recovered/Not Resolved]

NARRATIVE: CASE EVENT DATE: 20130618
